FAERS Safety Report 24607936 (Version 1)
Quarter: 2024Q4

REPORT INFORMATION
  Report Type: Other
  Country: GB (occurrence: GB)
  Receive Date: 20241112
  Receipt Date: 20241112
  Transmission Date: 20250114
  Serious: Yes (Disabling, Other)
  Sender: STRIDES
  Company Number: None

PATIENT
  Age: 31 Year
  Sex: Female
  Weight: 73 kg

DRUGS (2)
  1. NAPROXEN [Suspect]
     Active Substance: NAPROXEN
     Indication: Muscle injury
     Dosage: UNK
     Route: 065
     Dates: start: 20241024, end: 20241029
  2. LANSOPRAZOLE [Suspect]
     Active Substance: LANSOPRAZOLE
     Indication: Adverse drug reaction
     Dosage: 30 MILLIGRAM, QD, CAPSULE, HARD
     Route: 065
     Dates: start: 20241024, end: 20241029

REACTIONS (9)
  - Muscle spasms [Recovering/Resolving]
  - Chills [Recovered/Resolved]
  - Tremor [Recovering/Resolving]
  - Decreased appetite [Recovering/Resolving]
  - Agitation [Recovering/Resolving]
  - Brain fog [Recovering/Resolving]
  - Hallucination, visual [Recovered/Resolved]
  - Insomnia [Recovering/Resolving]
  - Muscle twitching [Recovering/Resolving]

NARRATIVE: CASE EVENT DATE: 20241024
